FAERS Safety Report 7555386 (Version 2)
Quarter: 2012Q4

REPORT INFORMATION
  Report Type: 
  Country: DE (occurrence: DE)
  Receive Date: 20100826
  Receipt Date: 20121010
  Transmission Date: 20130627
  Serious: Yes (Hospitalization)
  Sender: FDA-Public Use
  Company Number: PHHO2010DE12823

PATIENT
  Age: 69 Year
  Sex: Male

DRUGS (4)
  1. RAD 666 [Suspect]
     Indication: RENAL TRANSPLANT
     Dosage: 3 mg /Day
     Route: 048
     Dates: start: 20100818
  2. SIMULECT / CHI 621A / SDZ CHI 621 [Suspect]
     Indication: RENAL TRANSPLANT
     Dosage: 20 mg
     Route: 042
     Dates: start: 20100701, end: 20100701
  3. SIMULECT / CHI 621A / SDZ CHI 621 [Suspect]
     Dosage: 20 mg
     Route: 042
     Dates: start: 20100705, end: 20100705
  4. SIMULECT / CHI 621A / SDZ CHI 621 [Suspect]
     Dosage: 20 mg
     Route: 042
     Dates: start: 20100818, end: 20100818

REACTIONS (2)
  - Urinary tract infection [Recovered/Resolved]
  - Enterococcal infection [None]
